FAERS Safety Report 10684451 (Version 1)
Quarter: 2014Q4

REPORT INFORMATION
  Report Type: Spontaneous
  Country: GB (occurrence: GB)
  Receive Date: 20141231
  Receipt Date: 20141231
  Transmission Date: 20150529
  Serious: Yes (Other)
  Sender: FDA-Public Use
  Company Number: PHFR2014GB009061

PATIENT
  Sex: Female

DRUGS (1)
  1. SOM230 [Suspect]
     Active Substance: PASIREOTIDE
     Indication: NELSON^S SYNDROME
     Route: 065

REACTIONS (3)
  - IIIrd nerve paralysis [Unknown]
  - Diplopia [Unknown]
  - Tumour marker increased [Unknown]
